FAERS Safety Report 16443684 (Version 1)
Quarter: 2019Q2

REPORT INFORMATION
  Report Type: Spontaneous
  Country: IT (occurrence: IT)
  Receive Date: 20190618
  Receipt Date: 20190618
  Transmission Date: 20190711
  Serious: Yes (Other)
  Sender: FDA-Public Use
  Company Number: IT-AUROBINDO-AUR-APL-2019-034883

PATIENT

DRUGS (4)
  1. RISPERIDONE FILM-COATED TABLETS [Suspect]
     Active Substance: RISPERIDONE
     Indication: BEHAVIOUR DISORDER
     Dosage: 2 MILLIGRAM, ONCE A DAY
     Route: 048
     Dates: start: 20160101, end: 20160914
  2. VIMPAT [Concomitant]
     Active Substance: LACOSAMIDE
     Indication: PRODUCT USED FOR UNKNOWN INDICATION
     Dosage: 250 MILLIGRAM, ONCE A DAY
     Route: 065
  3. PROZIN [PROMETHAZINE] [Suspect]
     Active Substance: PROMETHAZINE HYDROCHLORIDE
     Indication: BEHAVIOUR DISORDER
     Dosage: 1 DOSAGE FORM, ONCE A DAY
     Route: 048
     Dates: start: 20160101, end: 20160914
  4. DEPAKIN [Concomitant]
     Active Substance: VALPROATE SODIUM
     Indication: PRODUCT USED FOR UNKNOWN INDICATION
     Dosage: 1 GRAM, ONCE A DAY
     Route: 065

REACTIONS (4)
  - Salivary hypersecretion [Recovering/Resolving]
  - Dystonia [Recovering/Resolving]
  - Extrapyramidal disorder [Recovering/Resolving]
  - Hunger [Recovering/Resolving]

NARRATIVE: CASE EVENT DATE: 20160914
